FAERS Safety Report 24557182 (Version 3)
Quarter: 2024Q4

REPORT INFORMATION
  Report Type: Spontaneous
  Country: US (occurrence: US)
  Receive Date: 20241028
  Receipt Date: 20241204
  Transmission Date: 20250115
  Serious: Yes (Other)
  Sender: NOVARTIS
  Company Number: US-002147023-NVSC2024US205346

PATIENT
  Sex: Female

DRUGS (2)
  1. MEKINIST [Suspect]
     Active Substance: TRAMETINIB DIMETHYL SULFOXIDE
     Indication: Pancreatic carcinoma
     Dosage: 2 MG (EVERY 24 HOURS)
     Route: 048
     Dates: start: 202408
  2. TAFINLAR [Suspect]
     Active Substance: DABRAFENIB MESYLATE
     Indication: Pancreatic carcinoma
     Dosage: 150 MG, BID (EVERY 12 HOURS)
     Route: 048
     Dates: start: 202408

REACTIONS (7)
  - Thrombosis [Unknown]
  - Gait disturbance [Unknown]
  - Hepatic lesion [Unknown]
  - Pain in extremity [Unknown]
  - Visual impairment [Unknown]
  - Dyschromatopsia [Unknown]
  - Off label use [Unknown]
